FAERS Safety Report 9089291 (Version 1)
Quarter: 2013Q1

REPORT INFORMATION
  Report Type: Report from Study
  Country: US (occurrence: US)
  Receive Date: 20130131
  Receipt Date: 20130131
  Transmission Date: 20140127
  Serious: No
  Sender: FDA-Public Use
  Company Number: US-ABBOTT-12P-163-0990275-00

PATIENT
  Age: 61 Year
  Sex: Female

DRUGS (7)
  1. HUMIRA [Suspect]
     Indication: PSORIASIS
     Dates: start: 20111103
  2. LEXAPRO [Concomitant]
     Indication: ANXIETY
  3. LEXAPRO [Concomitant]
     Indication: DEPRESSION
  4. XANAX [Concomitant]
     Indication: ANXIETY
  5. ADVIL [Concomitant]
     Indication: PAIN
  6. TYLENOL [Concomitant]
     Indication: PAIN
     Dosage: OVER-THE-COUNTER
  7. UNKNOWN ASTHMA INHALER [Concomitant]
     Indication: DYSPNOEA
     Route: 055

REACTIONS (2)
  - Injection site pain [Recovered/Resolved]
  - Bronchitis [Recovered/Resolved]
